FAERS Safety Report 10198209 (Version 1)
Quarter: 2014Q2

REPORT INFORMATION
  Report Type: Spontaneous
  Country: US (occurrence: US)
  Receive Date: 20140527
  Receipt Date: 20140527
  Transmission Date: 20141212
  Serious: No
  Sender: FDA-Public Use
  Company Number: US-NOVEN-13US007554

PATIENT
  Age: 19 Year
  Sex: Male
  Weight: 86.17 kg

DRUGS (4)
  1. DAYTRANA [Suspect]
     Indication: HYPERSOMNIA
     Dosage: 2 X 30 MG, UNK
     Route: 062
     Dates: start: 201307
  2. DAYTRANA [Suspect]
     Dosage: 30 MG, UNK
     Route: 062
     Dates: start: 2013, end: 201307
  3. DAYTRANA [Suspect]
     Dosage: 2 X 10 MG, UNK
     Route: 062
     Dates: start: 201306, end: 2013
  4. DAYTRANA [Suspect]
     Dosage: 10 MG, UNK
     Route: 062
     Dates: start: 201306, end: 201306

REACTIONS (5)
  - Off label use [Not Recovered/Not Resolved]
  - Drug prescribing error [Not Recovered/Not Resolved]
  - Wrong technique in drug usage process [Recovered/Resolved]
  - Drug dose omission [Not Recovered/Not Resolved]
  - No adverse event [None]
